FAERS Safety Report 10515148 (Version 1)
Quarter: 2014Q4

REPORT INFORMATION
  Report Type: Spontaneous
  Country: US (occurrence: US)
  Receive Date: 20141014
  Receipt Date: 20141014
  Transmission Date: 20150528
  Serious: No
  Sender: FDA-Public Use
  Company Number: US-ASTRAZENECA-2014SE74444

PATIENT
  Age: 22 Year
  Sex: Female

DRUGS (1)
  1. NEXIUM [Suspect]
     Active Substance: ESOMEPRAZOLE MAGNESIUM
     Route: 048

REACTIONS (8)
  - Decreased appetite [Unknown]
  - Dyspnoea exertional [Unknown]
  - Nausea [Unknown]
  - Crying [Unknown]
  - Peripheral swelling [Not Recovered/Not Resolved]
  - Vomiting [Recovered/Resolved]
  - Pregnancy [Unknown]
  - Affect lability [Unknown]

NARRATIVE: CASE EVENT DATE: 201409
